FAERS Safety Report 5390100-4 (Version None)
Quarter: 2007Q3

REPORT INFORMATION
  Report Type: 
  Country: None (occurrence: None)
  Receive Date: 20070718
  Receipt Date: 20070716
  Transmission Date: 20080115
  Serious: Yes (Hospitalization)
  Sender: FDA-Public Use
  Company Number: B0472037A

PATIENT
  Age: 6 Year
  Sex: Female
  Weight: 23 kg

DRUGS (7)
  1. ZOVIRAX [Suspect]
     Dosage: 450MG THREE TIMES PER DAY
     Route: 042
     Dates: start: 20070516, end: 20070524
  2. VALIUM [Concomitant]
     Indication: CONVULSION
     Route: 054
  3. PERFALGAN [Concomitant]
     Dosage: 350MG FOUR TIMES PER DAY
     Route: 065
  4. CLAFORAN [Concomitant]
     Dosage: 1G FOUR TIMES PER DAY
     Route: 042
  5. INIPOMP [Concomitant]
     Dosage: 25MG TWICE PER DAY
     Route: 065
  6. CORTANCYL [Concomitant]
     Dosage: 25MG TWICE PER DAY
     Route: 065
  7. CALCIUM GLUCONATE [Concomitant]
     Dosage: .5AMP TWICE PER DAY
     Route: 065

REACTIONS (4)
  - EXTRAVASATION [None]
  - OEDEMA PERIPHERAL [None]
  - SKIN NECROSIS [None]
  - WRONG TECHNIQUE IN DRUG USAGE PROCESS [None]
